FAERS Safety Report 8353570-5 (Version None)
Quarter: 2012Q2

REPORT INFORMATION
  Report Type: 
  Country: None (occurrence: None)
  Receive Date: 20120511
  Receipt Date: 20110609
  Transmission Date: 20120825
  Serious: No
  Sender: FDA-Public Use
  Company Number: US-GLAXOSMITHKLINE-A0931747A

PATIENT
  Age: 64 Year
  Sex: Female
  Weight: 49.8 kg

DRUGS (2)
  1. TYKERB [Suspect]
     Indication: BREAST CANCER
     Dosage: 250MG UNKNOWN
     Route: 048
     Dates: start: 20110302, end: 20110608
  2. XELODA [Suspect]
     Indication: BREAST CANCER
     Route: 065
     Dates: start: 20110302, end: 20110608

REACTIONS (4)
  - DISEASE PROGRESSION [None]
  - BRONCHITIS [None]
  - ILL-DEFINED DISORDER [None]
  - OEDEMA [None]
